FAERS Safety Report 4426380-9 (Version None)
Quarter: 2004Q3

REPORT INFORMATION
  Report Type: 
  Country: None (occurrence: None)
  Receive Date: 20040811
  Receipt Date: 20040728
  Transmission Date: 20050211
  Serious: Yes (Hospitalization, Other)
  Sender: FDA-Public Use
  Company Number: FR_040704527

PATIENT
  Sex: Female

DRUGS (3)
  1. GEMZAR [Suspect]
     Indication: OVARIAN CANCER
     Dosage: 800 MG/M2/1 OTHER
     Route: 050
     Dates: start: 20030825
  2. TAXOL [Suspect]
     Indication: OVARIAN CANCER
     Dosage: 175 MG/M2/1 OTHER
     Route: 050
     Dates: start: 20030825
  3. PARAPLATIN [Suspect]
     Indication: OVARIAN CANCER
     Dates: start: 20030825

REACTIONS (1)
  - PSEUDOMONAL SEPSIS [None]
